FAERS Safety Report 6703239-5 (Version None)
Quarter: 2010Q2

REPORT INFORMATION
  Report Type: 
  Country: None (occurrence: None)
  Receive Date: 20100428
  Receipt Date: 20100413
  Transmission Date: 20101027
  Serious: Yes (Hospitalization, Other)
  Sender: FDA-Public Use
  Company Number: 2010001143

PATIENT
  Age: 62 Year
  Sex: Female

DRUGS (10)
  1. ERLOTINIB            (ERLOTINIB) (TABLET) (ERLOTINIB) [Suspect]
     Indication: HEPATIC NEOPLASM MALIGNANT
     Dosage: ORAL
     Route: 048
     Dates: start: 20100313, end: 20100318
  2. SORAFENIB [Suspect]
     Indication: HEPATIC NEOPLASM MALIGNANT
     Dosage: ORAL
     Route: 048
     Dates: start: 20100313, end: 20100318
  3. MISTARD          (INITARD PROPRANOLOL (PROPRANOLOL) [Concomitant]
  4. RAMIPRIL [Concomitant]
  5. MODURETIC 5-50 [Concomitant]
  6. VYTORIN [Concomitant]
  7. ALENDRATE   (ALENDRONATE SODIUM) [Concomitant]
  8. VALIUM [Concomitant]
  9. FLEXOTARD   (DICLOFENAC SODIUM) [Concomitant]
  10. BETAMIN (3-15 AMINO-2, 4-DIIODOPHENYL)-ALANIN) [Concomitant]

REACTIONS (4)
  - BLOOD BILIRUBIN INCREASED [None]
  - ENCEPHALITIS [None]
  - HYPOXIA [None]
  - RESPIRATORY TRACT INFECTION [None]
